FAERS Safety Report 21138057 (Version 1)
Quarter: 2022Q3

REPORT INFORMATION
  Report Type: Spontaneous
  Country: CN (occurrence: CN)
  Receive Date: 20220727
  Receipt Date: 20220727
  Transmission Date: 20221026
  Serious: Yes (Other)
  Sender: FDA-Public Use
  Company Number: CN-GLAXOSMITHKLINE-CN2022APC110676

PATIENT

DRUGS (1)
  1. SERETIDE [Suspect]
     Active Substance: FLUTICASONE PROPIONATE\SALMETEROL XINAFOATE
     Indication: Asthma
     Dosage: 1 PUFF(S), BID 50/100UG 60 INHALATIONUNK
     Route: 055
     Dates: start: 2002

REACTIONS (3)
  - Parkinson^s disease [Not Recovered/Not Resolved]
  - Asthma [Unknown]
  - Tremor [Unknown]

NARRATIVE: CASE EVENT DATE: 20220101
